FAERS Safety Report 14072593 (Version 1)
Quarter: 2017Q4

REPORT INFORMATION
  Report Type: Report from Study
  Country: US (occurrence: US)
  Receive Date: 20171011
  Receipt Date: 20171011
  Transmission Date: 20180321
  Serious: Yes (Hospitalization, Other)
  Sender: FDA-Public Use
  Company Number: US-ROCHE-2004467

PATIENT
  Sex: Female

DRUGS (7)
  1. CELLCEPT [Suspect]
     Active Substance: MYCOPHENOLATE MOFETIL\MYCOPHENOLATE MOFETIL HYDROCHLORIDE
     Indication: MYOPATHY
  2. CELLCEPT [Suspect]
     Active Substance: MYCOPHENOLATE MOFETIL\MYCOPHENOLATE MOFETIL HYDROCHLORIDE
     Indication: INTENSIVE CARE UNIT ACQUIRED WEAKNESS
  3. CELLCEPT [Suspect]
     Active Substance: MYCOPHENOLATE MOFETIL\MYCOPHENOLATE MOFETIL HYDROCHLORIDE
     Indication: POLYMYOSITIS
  4. CELLCEPT [Suspect]
     Active Substance: MYCOPHENOLATE MOFETIL\MYCOPHENOLATE MOFETIL HYDROCHLORIDE
     Indication: SYSTEMIC SCLERODERMA
  5. CELLCEPT [Suspect]
     Active Substance: MYCOPHENOLATE MOFETIL\MYCOPHENOLATE MOFETIL HYDROCHLORIDE
     Indication: CONNECTIVE TISSUE DISORDER
     Dosage: 200MG/ML SOLN: ^1500MG BID^
     Route: 048
  6. CELLCEPT [Suspect]
     Active Substance: MYCOPHENOLATE MOFETIL\MYCOPHENOLATE MOFETIL HYDROCHLORIDE
     Indication: MUSCLE NECROSIS
  7. CELLCEPT [Suspect]
     Active Substance: MYCOPHENOLATE MOFETIL\MYCOPHENOLATE MOFETIL HYDROCHLORIDE
     Indication: INTERSTITIAL LUNG DISEASE

REACTIONS (14)
  - Mood swings [Recovering/Resolving]
  - Dry skin [Recovered/Resolved]
  - Musculoskeletal pain [Unknown]
  - Off label use [Unknown]
  - Muscular weakness [Recovering/Resolving]
  - Skin fissures [Recovered/Resolved]
  - Musculoskeletal stiffness [Unknown]
  - Swelling [Unknown]
  - Dyspnoea exertional [Recovered/Resolved]
  - Skin hypertrophy [Recovered/Resolved]
  - Intentional product use issue [Unknown]
  - Sleep disorder [Unknown]
  - Dyspnoea [Recovering/Resolving]
  - Fatigue [Recovered/Resolved]
